FAERS Safety Report 7529597-X (Version None)
Quarter: 2011Q2

REPORT INFORMATION
  Report Type: 
  Country: None (occurrence: None)
  Receive Date: 20110607
  Receipt Date: 20050905
  Transmission Date: 20111010
  Serious: Yes (Death, Other)
  Sender: FDA-Public Use
  Company Number: PHNR2005AU01215

PATIENT
  Sex: Male

DRUGS (1)
  1. CLOZARIL [Suspect]
     Indication: SCHIZOPHRENIA
     Dosage: 0 - 650 MG/DAY
     Dates: start: 19961030

REACTIONS (3)
  - CEREBRAL HAEMORRHAGE [None]
  - THROAT CANCER [None]
  - CEREBROVASCULAR ACCIDENT [None]
